FAERS Safety Report 17478535 (Version 1)
Quarter: 2020Q1

REPORT INFORMATION
  Report Type: Spontaneous
  Country: DE (occurrence: DE)
  Receive Date: 20200228
  Receipt Date: 20200228
  Transmission Date: 20200409
  Serious: Yes (Other)
  Sender: FDA-Public Use
  Company Number: DE-PFIZER INC-2019545402

PATIENT
  Age: 40 Year
  Sex: Female
  Weight: 77 kg

DRUGS (3)
  1. PREGABALINE PFIZER [Suspect]
     Active Substance: PREGABALIN
     Indication: NEURALGIA
     Dosage: 50 MG, 3X/DAY, 1-1-1
  2. PREGABALINE PFIZER [Suspect]
     Active Substance: PREGABALIN
     Dosage: 150 MG, 2X/DAY, 1-0-1
  3. DULOXETINE [DULOXETINE HYDROCHLORIDE] [Suspect]
     Active Substance: DULOXETINE HYDROCHLORIDE
     Dosage: 30 MG, 2X/DAY, 2-0-1
     Dates: start: 2010

REACTIONS (1)
  - Neuropathy peripheral [Not Recovered/Not Resolved]

NARRATIVE: CASE EVENT DATE: 20191201
